FAERS Safety Report 16078661 (Version 1)
Quarter: 2019Q1

REPORT INFORMATION
  Report Type: Spontaneous
  Country: US (occurrence: US)
  Receive Date: 20190315
  Receipt Date: 20190315
  Transmission Date: 20190418
  Serious: Yes (Hospitalization, Other)
  Sender: FDA-Public Use
  Company Number: US-THE RITEDOSE CORPORATION-2019RIT000063

PATIENT

DRUGS (1)
  1. ALBUTEROL SULFATE INHALATION SOLUTION [Suspect]
     Active Substance: ALBUTEROL SULFATE
     Indication: DYSPNOEA
     Dosage: 1 VIAL 2-6 TIMES DAILY
     Route: 055

REACTIONS (8)
  - Cardiac operation [Recovered/Resolved]
  - Feeling jittery [Recovered/Resolved]
  - Vocal cord paralysis [Recovered/Resolved]
  - Insomnia [Recovered/Resolved]
  - Dyspnoea [Recovered/Resolved]
  - Coronary artery bypass [Recovered/Resolved]
  - Transient ischaemic attack [Recovered/Resolved]
  - Chest pain [Recovered/Resolved]

NARRATIVE: CASE EVENT DATE: 2015
